FAERS Safety Report 9535991 (Version 1)
Quarter: 2013Q2

REPORT INFORMATION
  Report Type: Spontaneous
  Country: US (occurrence: None)
  Receive Date: 20130507
  Receipt Date: 20130507
  Transmission Date: 20140414
  Serious: Yes (Other)
  Sender: FDA-Public Use
  Company Number: PHEH2012US024919

PATIENT
  Age: 53 Year
  Sex: Female
  Weight: 62.1 kg

DRUGS (1)
  1. AFINITOR [Suspect]
     Route: 048
     Dates: start: 20121115

REACTIONS (3)
  - Stomatitis [None]
  - Speech disorder [None]
  - Aphagia [None]
